FAERS Safety Report 5344891-9 (Version None)
Quarter: 2007Q2

REPORT INFORMATION
  Report Type: 
  Country: None (occurrence: None)
  Receive Date: 20070416
  Receipt Date: 20070119
  Transmission Date: 20071010
  Serious: No
  Sender: FDA-Public Use
  Company Number: 2007SP000228

PATIENT
  Age: 38 Year
  Sex: Female
  Weight: 65.7716 kg

DRUGS (6)
  1. LUNESTA [Suspect]
     Indication: INSOMNIA
     Dosage: 3 MG ORAL
     Route: 048
     Dates: start: 20070118
  2. AMBIEN [Concomitant]
  3. FLUOXETINE [Concomitant]
  4. MIDRIN [Concomitant]
  5. PREVACID [Concomitant]
  6. VITAMIN CAP [Concomitant]

REACTIONS (2)
  - HEADACHE [None]
  - MIDDLE INSOMNIA [None]
